FAERS Safety Report 12065379 (Version 1)
Quarter: 2016Q1

REPORT INFORMATION
  Report Type: Spontaneous
  Country: US (occurrence: US)
  Receive Date: 20160210
  Receipt Date: 20160210
  Transmission Date: 20160526
  Serious: No
  Sender: FDA-Public Use
  Company Number: US-ALLERGAN-1510065US

PATIENT
  Age: 55 Year
  Sex: Female

DRUGS (6)
  1. BOTOX COSMETIC [Suspect]
     Active Substance: ONABOTULINUMTOXINA
     Indication: SKIN WRINKLING
     Dosage: 12 UNITS, SINGLE
     Route: 030
     Dates: start: 20150507, end: 20150507
  2. BOTOX COSMETIC [Suspect]
     Active Substance: ONABOTULINUMTOXINA
     Indication: SKIN WRINKLING
     Dosage: 12 UNITS, SINGLE
     Route: 030
     Dates: start: 20150507, end: 20150507
  3. BOTOX COSMETIC [Suspect]
     Active Substance: ONABOTULINUMTOXINA
     Indication: SKIN WRINKLING
     Dosage: UNK
     Dates: start: 2012, end: 2012
  4. PROGESTERONE. [Concomitant]
     Active Substance: PROGESTERONE
     Indication: PRODUCT USED FOR UNKNOWN INDICATION
  5. PROBIOTICS [Concomitant]
     Active Substance: PROBIOTICS NOS
     Indication: PRODUCT USED FOR UNKNOWN INDICATION
  6. VITAMINS [Concomitant]
     Active Substance: VITAMINS
     Indication: PRODUCT USED FOR UNKNOWN INDICATION

REACTIONS (17)
  - Nervousness [Unknown]
  - Oropharyngeal pain [Unknown]
  - White blood cell count increased [Unknown]
  - Tremor [Unknown]
  - Urinary tract infection [Not Recovered/Not Resolved]
  - Feeling jittery [Unknown]
  - Diarrhoea [Unknown]
  - Dizziness [Unknown]
  - Anxiety [Unknown]
  - Chills [Unknown]
  - Feeling abnormal [Unknown]
  - Influenza like illness [Unknown]
  - Dysphagia [Not Recovered/Not Resolved]
  - Abdominal pain upper [Unknown]
  - Anxiety [Unknown]
  - Dry mouth [Unknown]
  - Pain [Unknown]

NARRATIVE: CASE EVENT DATE: 201505
